FAERS Safety Report 23846062 (Version 5)
Quarter: 2024Q3

REPORT INFORMATION
  Report Type: Other
  Country: US (occurrence: US)
  Receive Date: 20240512
  Receipt Date: 20240822
  Transmission Date: 20241016
  Serious: No
  Sender: TRAVERE THERAPEUTICS
  Company Number: US-TRAVERE-2024TVT00351

PATIENT
  Age: 65 Year
  Sex: Male

DRUGS (4)
  1. FILSPARI [Suspect]
     Active Substance: SPARSENTAN
     Indication: IgA nephropathy
     Route: 048
     Dates: start: 20240330
  2. FILSPARI [Suspect]
     Active Substance: SPARSENTAN
     Indication: Bone disorder
     Route: 048
     Dates: start: 20240415
  3. FILSPARI [Suspect]
     Active Substance: SPARSENTAN
     Indication: Proteinuria
  4. PROGRAF [Concomitant]
     Active Substance: TACROLIMUS

REACTIONS (5)
  - Pollakiuria [Unknown]
  - Blood creatinine increased [None]
  - Musculoskeletal chest pain [Unknown]
  - Hepatic enzyme increased [Unknown]
  - Immunosuppressant drug level increased [Unknown]

NARRATIVE: CASE EVENT DATE: 20240404
